FAERS Safety Report 9060669 (Version 2)
Quarter: 2013Q1

REPORT INFORMATION
  Report Type: Spontaneous
  Country: GR (occurrence: GR)
  Receive Date: 20130204
  Receipt Date: 20130227
  Transmission Date: 20140127
  Serious: Yes (Other)
  Sender: FDA-Public Use
  Company Number: GR-TEVA-383269ISR

PATIENT
  Sex: 0

DRUGS (1)
  1. PAROXETINE TEVA [Suspect]
     Route: 048

REACTIONS (1)
  - Electrocardiogram QT prolonged [Unknown]
